FAERS Safety Report 23284748 (Version 2)
Quarter: 2023Q4

REPORT INFORMATION
  Report Type: Spontaneous
  Country: BR (occurrence: BR)
  Receive Date: 20231211
  Receipt Date: 20231222
  Transmission Date: 20240109
  Serious: Yes (Other)
  Sender: FDA-Public Use
  Company Number: BR-009507513-2312BRA003394

PATIENT
  Age: 83 Year
  Sex: Female
  Weight: 70 kg

DRUGS (1)
  1. PEMBROLIZUMAB [Suspect]
     Active Substance: PEMBROLIZUMAB
     Indication: Malignant melanoma stage III
     Dosage: 200 MILLIGRAM, Q3W
     Route: 042
     Dates: start: 202102, end: 202203

REACTIONS (4)
  - Amyloidosis [Recovered/Resolved]
  - Paraesthesia [Unknown]
  - Nodule [Recovered/Resolved]
  - Melanoderma [Recovered/Resolved]

NARRATIVE: CASE EVENT DATE: 20230601
